FAERS Safety Report 24348750 (Version 2)
Quarter: 2024Q4

REPORT INFORMATION
  Report Type: Spontaneous
  Country: PT (occurrence: PT)
  Receive Date: 20240923
  Receipt Date: 20241107
  Transmission Date: 20250115
  Serious: Yes (Hospitalization, Other)
  Sender: SANOFI AVENTIS
  Company Number: PT-002147023-PHHY2018PT147150

PATIENT
  Age: 54 Year
  Sex: Female

DRUGS (26)
  1. DAPAGLIFLOZIN [Suspect]
     Active Substance: DAPAGLIFLOZIN
     Indication: Product used for unknown indication
     Dosage: UNK
     Route: 048
  2. ROSUVASTATIN CALCIUM [Suspect]
     Active Substance: ROSUVASTATIN CALCIUM
     Indication: Product used for unknown indication
     Dosage: 10 MG, QD
     Route: 048
  3. ROSUVASTATIN CALCIUM [Suspect]
     Active Substance: ROSUVASTATIN CALCIUM
     Dosage: 20 MG, QD
     Route: 048
  4. CARVEDILOL [Suspect]
     Active Substance: CARVEDILOL
     Indication: Product used for unknown indication
     Dosage: 12.5 MG, Q12H
  5. CARVEDILOL [Suspect]
     Active Substance: CARVEDILOL
     Dosage: 25 MG, QD
  6. CARVEDILOL [Suspect]
     Active Substance: CARVEDILOL
     Dosage: 25 MG, QD (1X/DAY), 2X/DAY), 12.5 MG, BID (25 MG QD)
     Route: 065
  7. CARVEDILOL [Suspect]
     Active Substance: CARVEDILOL
     Dosage: 12.5 MILLIGRAM, BID
     Route: 065
  8. CARVEDILOL [Suspect]
     Active Substance: CARVEDILOL
     Dosage: 25 MILLIGRAM, QD
     Route: 065
  9. METFORMIN HYDROCHLORIDE [Suspect]
     Active Substance: METFORMIN HYDROCHLORIDE
     Indication: Product used for unknown indication
     Dosage: 1 DF, Q12H
  10. INSULIN LISPRO [Suspect]
     Active Substance: INSULIN LISPRO
     Indication: Product used for unknown indication
     Dosage: 40 IU, QD ( (25/75: + 20U 20U / D)
     Route: 065
  11. FUROSEMIDE [Suspect]
     Active Substance: FUROSEMIDE
     Indication: Product used for unknown indication
     Dosage: 40 MG, QD
  12. FUROSEMIDE [Suspect]
     Active Substance: FUROSEMIDE
     Dosage: 40 MG, QD (1X/DAY)
     Route: 048
  13. FUROSEMIDE [Suspect]
     Active Substance: FUROSEMIDE
     Dosage: 40 MILLIGRAM, QD
     Route: 065
  14. ASPIRIN [Suspect]
     Active Substance: ASPIRIN
     Indication: Product used for unknown indication
     Dosage: 100 MG, QD
  15. ASPIRIN [Suspect]
     Active Substance: ASPIRIN
     Indication: Product used for unknown indication
     Dosage: 100 MG, QD (1X/DAY)
     Route: 048
  16. RAMIPRIL [Suspect]
     Active Substance: RAMIPRIL
     Indication: Product used for unknown indication
     Dosage: 5 MG, QD
     Route: 048
  17. RAMIPRIL [Suspect]
     Active Substance: RAMIPRIL
     Dosage: 10 MG, QD
     Route: 048
  18. METFORMIN\VILDAGLIPTIN [Suspect]
     Active Substance: METFORMIN\VILDAGLIPTIN
     Indication: Product used for unknown indication
     Dosage: 1 DF, Q12H
  19. PANTOPRAZOLE SODIUM [Suspect]
     Active Substance: PANTOPRAZOLE SODIUM
     Indication: Product used for unknown indication
     Dosage: 20 MG, QD
     Route: 042
  20. PANTOPRAZOLE SODIUM [Suspect]
     Active Substance: PANTOPRAZOLE SODIUM
     Dosage: 20 MG, QD (1X/DAY)
     Route: 042
  21. ENTRESTO [Suspect]
     Active Substance: SACUBITRIL\VALSARTAN
     Indication: Product used for unknown indication
     Dosage: 2 DF, QD (49/51 MG)
  22. IVABRADINE HYDROCHLORIDE [Suspect]
     Active Substance: IVABRADINE HYDROCHLORIDE
     Indication: Product used for unknown indication
     Dosage: 5 MG, Q12H
  23. IVABRADINE HYDROCHLORIDE [Suspect]
     Active Substance: IVABRADINE HYDROCHLORIDE
     Dosage: 10 MG, QD
     Route: 066
  24. IVABRADINE HYDROCHLORIDE [Suspect]
     Active Substance: IVABRADINE HYDROCHLORIDE
     Dosage: 5 MG, BID (10 MG, QD)
     Route: 066
  25. VILDAGLIPTIN [Suspect]
     Active Substance: VILDAGLIPTIN
     Indication: Product used for unknown indication
     Dosage: 1 DF, BID
     Route: 065
  26. SPIRONOLACTONE [Suspect]
     Active Substance: SPIRONOLACTONE
     Indication: Product used for unknown indication
     Dosage: 125 MG, QD

REACTIONS (3)
  - Headache [Recovered/Resolved]
  - Ischaemic stroke [Recovered/Resolved]
  - Chest pain [Unknown]
